FAERS Safety Report 5365618-0 (Version None)
Quarter: 2007Q2

REPORT INFORMATION
  Report Type: 
  Country: None (occurrence: None)
  Receive Date: 20070611
  Receipt Date: 20061127
  Transmission Date: 20071010
  Serious: Yes (Death, Other)
  Sender: FDA-Public Use
  Company Number: USA-2006-0025839

PATIENT
  Age: 31 Year
  Sex: Male

DRUGS (9)
  1. OXYCODONE HCL [Suspect]
     Indication: DRUG ABUSER
  2. OXYMORPHONE (OXYMORPHONE) [Suspect]
     Indication: DRUG USE FOR UNKNOWN INDICATION
  3. TESTOSTERONE [Suspect]
     Indication: DRUG USE FOR UNKNOWN INDICATION
  4. MARIJUANA (CANNABIS) [Suspect]
     Indication: DRUG USE FOR UNKNOWN INDICATION
  5. CAFFEINE CITRATE [Suspect]
     Indication: DRUG USE FOR UNKNOWN INDICATION
  6. CLONAZEPAM [Concomitant]
  7. ANAPRIL [Concomitant]
  8. LEXAPRO [Concomitant]
  9. KEPPRA [Concomitant]

REACTIONS (3)
  - ACCIDENTAL OVERDOSE [None]
  - ARRHYTHMIA [None]
  - SUBSTANCE ABUSE [None]
